FAERS Safety Report 6427019-3 (Version None)
Quarter: 2009Q4

REPORT INFORMATION
  Report Type: 
  Country: None (occurrence: None)
  Receive Date: 20091104
  Receipt Date: 20091029
  Transmission Date: 20100525
  Serious: Yes (Hospitalization)
  Sender: FDA-Public Use
  Company Number: FR-MERCK-0910FRA00113

PATIENT
  Age: 87 Year
  Sex: Female

DRUGS (5)
  1. NOROXIN [Suspect]
     Indication: URINARY TRACT INFECTION
     Route: 048
     Dates: start: 20090512, end: 20090519
  2. RAMIPRIL [Suspect]
     Indication: HYPERTENSION
     Route: 048
     Dates: end: 20090519
  3. AMLODIPINE BESYLATE [Suspect]
     Indication: HYPERTENSION
     Route: 048
     Dates: end: 20090519
  4. ASPIRIN LYSINE [Concomitant]
     Route: 065
  5. PAROXETINE HYDROCHLORIDE [Concomitant]
     Route: 065

REACTIONS (2)
  - MALAISE [None]
  - PETIT MAL EPILEPSY [None]
